FAERS Safety Report 23299934 (Version 1)
Quarter: 2023Q4

REPORT INFORMATION
  Report Type: Spontaneous
  Country: US (occurrence: US)
  Receive Date: 20231215
  Receipt Date: 20231215
  Transmission Date: 20240110
  Serious: Yes (Hospitalization)
  Sender: FDA-Public Use
  Company Number: US-STRIDES ARCOLAB LIMITED-2022SP016963

PATIENT
  Age: 33 Year
  Sex: Female
  Weight: 63.9 kg

DRUGS (29)
  1. OLANZAPINE [Suspect]
     Active Substance: OLANZAPINE
     Indication: Acute psychosis
     Dosage: 5 MILLIGRAM, AT BED TIME; (ON DAY 3)
     Route: 048
  2. OLANZAPINE [Suspect]
     Active Substance: OLANZAPINE
     Dosage: 5 MILLIGRAM, EVERY MORNING; (ON DAY 4)
     Route: 065
  3. OLANZAPINE [Suspect]
     Active Substance: OLANZAPINE
     Dosage: 20 MILLIGRAM, AT BED TIME; (ON DAY 4)
     Route: 048
  4. OLANZAPINE [Suspect]
     Active Substance: OLANZAPINE
     Dosage: 10 MILLIGRAM, UNKNOWN; (ON DAY 5)
     Route: 065
  5. OLANZAPINE [Suspect]
     Active Substance: OLANZAPINE
     Dosage: 10 MILLIGRAM, UNKNOWN; (ON DAY 6)
     Route: 065
  6. OLANZAPINE [Suspect]
     Active Substance: OLANZAPINE
     Dosage: 10 MILLIGRAM, UNKNOWN; (ON DAY 7)
     Route: 065
  7. OLANZAPINE [Suspect]
     Active Substance: OLANZAPINE
     Dosage: 15 MILLIGRAM, UNKNOWN; (ON DAY 8)
     Route: 065
  8. OLANZAPINE [Suspect]
     Active Substance: OLANZAPINE
     Dosage: 20 MILLIGRAM, UNKNOWN; (ON DAY 9)
     Route: 065
  9. OLANZAPINE [Suspect]
     Active Substance: OLANZAPINE
     Dosage: 20 MILLIGRAM, UNKNOWN; (ON DAY 10)
     Route: 065
  10. OLANZAPINE [Suspect]
     Active Substance: OLANZAPINE
     Dosage: 20 MILLIGRAM, UNKNOWN; (ON DAY 11)
     Route: 065
  11. OLANZAPINE [Suspect]
     Active Substance: OLANZAPINE
     Dosage: 20 MILLIGRAM, UNKNOWN; (ON DAY 12)
     Route: 065
  12. OLANZAPINE [Suspect]
     Active Substance: OLANZAPINE
     Dosage: 25 MILLIGRAM, UNKNOWN; (ON DAY 13)
     Route: 065
  13. OLANZAPINE [Suspect]
     Active Substance: OLANZAPINE
     Dosage: 25 MILLIGRAM, UNKNOWN; (ON DAY 14)
     Route: 065
  14. OLANZAPINE [Suspect]
     Active Substance: OLANZAPINE
     Dosage: 5 MILLIGRAM, UNKNOWN; (ON DAY 15)
     Route: 065
  15. OLANZAPINE [Suspect]
     Active Substance: OLANZAPINE
     Dosage: 25 MILLIGRAM, UNKNOWN; (ON DAY 16)
     Route: 065
  16. OLANZAPINE [Suspect]
     Active Substance: OLANZAPINE
     Dosage: 5 MILLIGRAM, UNKNOWN; (ON DAY 17)
     Route: 065
  17. CHLORPROMAZINE [Concomitant]
     Active Substance: CHLORPROMAZINE
     Indication: Acute psychosis
     Dosage: 100 MILLIGRAM, UNKNOWN
     Route: 030
  18. CHLORPROMAZINE [Concomitant]
     Active Substance: CHLORPROMAZINE
     Indication: Agitation
  19. LORAZEPAM [Concomitant]
     Active Substance: LORAZEPAM
     Indication: Acute psychosis
     Dosage: 3 MILLIGRAM, UNKNOWN
     Route: 030
  20. LORAZEPAM [Concomitant]
     Active Substance: LORAZEPAM
     Indication: Agitation
  21. FERROUS SULFATE [Concomitant]
     Active Substance: FERROUS SULFATE
     Indication: Product used for unknown indication
     Dosage: 325 MILLIGRAM, TID
     Route: 048
  22. FERROUS SULFATE [Concomitant]
     Active Substance: FERROUS SULFATE
     Dosage: 325 MILLIGRAM, QD
     Route: 048
  23. AMLODIPINE [Concomitant]
     Active Substance: AMLODIPINE BESYLATE
     Indication: Blood pressure increased
     Dosage: 5 MILLIGRAM, QD
     Route: 048
  24. AMLODIPINE [Concomitant]
     Active Substance: AMLODIPINE BESYLATE
     Dosage: 10 MILLIGRAM, QD
     Route: 048
  25. HYDROCHLOROTHIAZIDE [Concomitant]
     Active Substance: HYDROCHLOROTHIAZIDE
     Indication: Product used for unknown indication
     Dosage: 25 MILLIGRAM, QD
     Route: 048
  26. HYDROCHLOROTHIAZIDE [Concomitant]
     Active Substance: HYDROCHLOROTHIAZIDE
     Dosage: 25 MILLIGRAM, QD
     Route: 048
  27. AMPHETAMINE [Concomitant]
     Active Substance: AMPHETAMINE
     Indication: Product used for unknown indication
     Dosage: UNK
     Route: 065
  28. CANNABIS SATIVA SUBSP. INDICA TOP [Concomitant]
     Active Substance: CANNABIS SATIVA SUBSP. INDICA TOP
     Indication: Product used for unknown indication
     Dosage: UNK
     Route: 065
  29. COCAINE [Concomitant]
     Active Substance: COCAINE
     Indication: Product used for unknown indication
     Dosage: UNK
     Route: 065

REACTIONS (1)
  - Hyperglycaemia [Unknown]
